FAERS Safety Report 9915300 (Version 2)
Quarter: 2014Q1

REPORT INFORMATION
  Report Type: Spontaneous
  Country: US (occurrence: US)
  Receive Date: 20140221
  Receipt Date: 20140310
  Transmission Date: 20141002
  Serious: Yes (Death)
  Sender: FDA-Public Use
  Company Number: US-ASTRAZENECA-2014SE11944

PATIENT
  Age: 222 Day
  Sex: Female

DRUGS (1)
  1. SYNAGIS [Suspect]
     Dosage: 50 MG/0.5 ML, 15 MG/KG MONTHLY
     Route: 030
     Dates: start: 201310

REACTIONS (1)
  - Death [Fatal]
